FAERS Safety Report 9798592 (Version 5)
Quarter: 2014Q3

REPORT INFORMATION
  Report Type: Spontaneous
  Country: US (occurrence: US)
  Receive Date: 20140106
  Receipt Date: 20140930
  Transmission Date: 20150326
  Serious: Yes (Death, Hospitalization, Disabling, Other)
  Sender: FDA-Public Use
  Company Number: US-009507513-1401USA000717

PATIENT
  Sex: Male
  Weight: 93.42 kg

DRUGS (2)
  1. JANUVIA [Suspect]
     Active Substance: SITAGLIPTIN PHOSPHATE
     Indication: TYPE 2 DIABETES MELLITUS
     Dosage: 100 MG, DAILY
     Route: 048
     Dates: start: 200901, end: 201001
  2. JANUMET [Suspect]
     Active Substance: METFORMIN HYDROCHLORIDE\SITAGLIPTIN PHOSPHATE
     Indication: TYPE 2 DIABETES MELLITUS
     Dosage: 50-1000 MG, BID
     Route: 048
     Dates: start: 201110, end: 201207

REACTIONS (15)
  - Pancreatic carcinoma [Unknown]
  - Metastasis [Unknown]
  - Pancreatic carcinoma metastatic [Fatal]
  - Injury [Not Recovered/Not Resolved]
  - Anaemia [Unknown]
  - Gastrointestinal disorder [Unknown]
  - Abdominal mass [Unknown]
  - Abdominal tenderness [Unknown]
  - Metastases to liver [Fatal]
  - Metastases to spleen [Unknown]
  - Hepatic neoplasm [Unknown]
  - Insulin-requiring type 2 diabetes mellitus [Unknown]
  - Packed red blood cell transfusion [Unknown]
  - Diabetes mellitus inadequate control [Unknown]
  - Gastrointestinal haemorrhage [Unknown]

NARRATIVE: CASE EVENT DATE: 20111116
